FAERS Safety Report 8954843 (Version 1)
Quarter: 2012Q4

REPORT INFORMATION
  Report Type: Spontaneous
  Country: US (occurrence: None)
  Receive Date: 20121130
  Receipt Date: 20121130
  Transmission Date: 20130627
  Serious: Yes (Other)
  Sender: FDA-Public Use
  Company Number: 2012P1065632

PATIENT
  Age: 27 Week
  Sex: Female
  Weight: .87 kg

DRUGS (2)
  1. AMPICILLIN [Suspect]
     Indication: EMPIRIC TREATMENT
  2. GENTAMICIN [Suspect]
     Indication: EMPIRIC TREATMENT

REACTIONS (1)
  - Systemic inflammatory response syndrome [None]
